FAERS Safety Report 6328237-5 (Version None)
Quarter: 2009Q3

REPORT INFORMATION
  Report Type: 
  Country: None (occurrence: None)
  Receive Date: 20090825
  Receipt Date: 20090616
  Transmission Date: 20100115
  Serious: No
  Sender: FDA-Public Use
  Company Number: US-ABBOTT-09P-163-0559326-00

PATIENT
  Sex: Female
  Weight: 90.8 kg

DRUGS (6)
  1. SYNTHROID [Suspect]
     Indication: HYPOTHYROIDISM
     Route: 048
     Dates: start: 20081001, end: 20081101
  2. SYNTHROID [Suspect]
     Dates: start: 20081201, end: 20090101
  3. SYNTHROID [Suspect]
     Dates: start: 20090201
  4. COUMADIN [Concomitant]
     Indication: ANTICOAGULANT THERAPY
     Route: 048
     Dates: start: 20070101
  5. COUMADIN [Concomitant]
     Indication: PULMONARY EMBOLISM
  6. COUMADIN [Concomitant]
     Indication: ATRIAL FIBRILLATION

REACTIONS (4)
  - DIZZINESS [None]
  - HEADACHE [None]
  - PALPITATIONS [None]
  - SINUSITIS [None]
